FAERS Safety Report 7541646-1 (Version None)
Quarter: 2011Q2

REPORT INFORMATION
  Report Type: 
  Country: None (occurrence: None)
  Receive Date: 20110613
  Receipt Date: 20110601
  Transmission Date: 20111010
  Serious: Yes (Other)
  Sender: FDA-Public Use
  Company Number: US-JNJFOC-20110602651

PATIENT
  Sex: Male
  Weight: 83.46 kg

DRUGS (2)
  1. LEVAQUIN [Suspect]
     Route: 048
     Dates: start: 20110514, end: 20110515
  2. LEVAQUIN [Suspect]
     Indication: URINARY TRACT INFECTION
     Route: 048
     Dates: start: 20110516, end: 20110521

REACTIONS (12)
  - ABNORMAL LOSS OF WEIGHT [None]
  - TREMOR [None]
  - POLLAKIURIA [None]
  - TREATMENT NONCOMPLIANCE [None]
  - FEELING OF BODY TEMPERATURE CHANGE [None]
  - PALPITATIONS [None]
  - INSOMNIA [None]
  - DECREASED APPETITE [None]
  - ANXIETY [None]
  - OVERDOSE [None]
  - CRYING [None]
  - CHEST DISCOMFORT [None]
